FAERS Safety Report 4401529-2 (Version None)
Quarter: 2004Q2

REPORT INFORMATION
  Report Type: 
  Country: None (occurrence: None)
  Receive Date: 20040618
  Receipt Date: 20040426
  Transmission Date: 20050107
  Serious: No
  Sender: FDA-Public Use
  Company Number: US-JNJFOC-20040401654

PATIENT
  Age: 23 Year
  Sex: Female
  Weight: 56.6996 kg

DRUGS (3)
  1. ORTHO EVRA [Suspect]
     Indication: CONTRACEPTION
     Dosage: 1 DOSE (S), 3 IN 4 WEEK, TRANSDERMAL
     Route: 062
     Dates: start: 20040101
  2. XANAX [Concomitant]
  3. LORTAB [Concomitant]

REACTIONS (4)
  - BREAST TENDERNESS [None]
  - FUNGAL INFECTION [None]
  - MIGRAINE [None]
  - MOOD SWINGS [None]
